FAERS Safety Report 7930772-0 (Version None)
Quarter: 2011Q4

REPORT INFORMATION
  Report Type: 
  Country: None (occurrence: None)
  Receive Date: 20111121
  Receipt Date: 20111117
  Transmission Date: 20120403
  Serious: Yes (Hospitalization)
  Sender: FDA-Public Use
  Company Number: US-GLAXOSMITHKLINE-A0953746A

PATIENT
  Age: 71 Year
  Sex: Male

DRUGS (13)
  1. ADVAIR DISKUS 100/50 [Suspect]
     Indication: CHRONIC OBSTRUCTIVE PULMONARY DISEASE
     Dosage: 1PUFF TWICE PER DAY
     Route: 055
     Dates: start: 20110806
  2. LOPRESSOR [Concomitant]
  3. BENICAR [Concomitant]
  4. LANOXIN [Concomitant]
  5. LIPITOR [Concomitant]
  6. KLONOPIN [Concomitant]
  7. ASPIRIN [Concomitant]
  8. TRAMADOL HCL [Concomitant]
  9. LASIX [Concomitant]
  10. VENTOLIN HFA [Concomitant]
  11. OXYGEN [Concomitant]
  12. FLEXERIL [Concomitant]
  13. CIMETIDINE [Concomitant]

REACTIONS (8)
  - PYREXIA [None]
  - PNEUMONIA [None]
  - HEART RATE INCREASED [None]
  - CHILLS [None]
  - BLOOD PRESSURE DECREASED [None]
  - APHONIA [None]
  - BLOOD GLUCOSE INCREASED [None]
  - BLOOD POTASSIUM DECREASED [None]
